FAERS Safety Report 12923304 (Version 1)
Quarter: 2016Q4

REPORT INFORMATION
  Report Type: Report from Study
  Country: None (occurrence: BR)
  Receive Date: 20161108
  Receipt Date: 20161108
  Transmission Date: 20170207
  Serious: Yes (Other)
  Sender: FDA-Public Use
  Company Number: BR-ABBVIE-16P-020-1772138-00

PATIENT
  Age: 64 Year
  Sex: Male
  Weight: 100 kg

DRUGS (1)
  1. HUMIRA [Suspect]
     Active Substance: ADALIMUMAB
     Indication: ANKYLOSING SPONDYLITIS
     Route: 058
     Dates: start: 20150708, end: 20161011

REACTIONS (7)
  - Nail discolouration [Recovered/Resolved]
  - Vitamin D deficiency [Unknown]
  - Nail discolouration [Unknown]
  - CSF test abnormal [Recovering/Resolving]
  - Peripheral swelling [Not Recovered/Not Resolved]
  - Pain [Unknown]
  - Spondylitis [Unknown]

NARRATIVE: CASE EVENT DATE: 201604
